FAERS Safety Report 25972643 (Version 2)
Quarter: 2025Q4

REPORT INFORMATION
  Report Type: Spontaneous
  Country: EU (occurrence: EU)
  Receive Date: 20251029
  Receipt Date: 20251103
  Transmission Date: 20260117
  Serious: Yes (Hospitalization, Other)
  Sender: TAKEDA
  Company Number: None

PATIENT
  Age: 63 Year
  Sex: Female
  Weight: 80.4 kg

DRUGS (5)
  1. ICLUSIG [Suspect]
     Active Substance: PONATINIB HYDROCHLORIDE
     Indication: Chronic lymphocytic leukaemia stage 4
     Dosage: 30 MILLIGRAM, QD
  2. CYTARABINE [Suspect]
     Active Substance: CYTARABINE
     Indication: Chronic lymphocytic leukaemia stage 4
     Dosage: 6050 MILLIGRAM, Q12H
     Dates: start: 20250716, end: 20250717
  3. CYTARABINE [Suspect]
     Active Substance: CYTARABINE
     Dosage: 40 MILLIGRAM, QD
     Dates: start: 20250718, end: 20250718
  4. METHOTREXATE [Suspect]
     Active Substance: METHOTREXATE
     Indication: Chronic lymphocytic leukaemia stage 4
     Dosage: 2000 MILLIGRAM, QD
     Dates: start: 20250715, end: 20250715
  5. METHOTREXATE [Suspect]
     Active Substance: METHOTREXATE
     Dosage: 15 MILLIGRAM, QD
     Dates: start: 20250718, end: 20250718

REACTIONS (4)
  - Paraparesis [Not Recovered/Not Resolved]
  - Peripheral motor neuropathy [Not Recovered/Not Resolved]
  - Peripheral sensory neuropathy [Not Recovered/Not Resolved]
  - Off label use [Unknown]

NARRATIVE: CASE EVENT DATE: 20250808
